FAERS Safety Report 8395267-1 (Version None)
Quarter: 2012Q2

REPORT INFORMATION
  Report Type: 
  Country: None (occurrence: None)
  Receive Date: 20120530
  Receipt Date: 20120527
  Transmission Date: 20120825
  Serious: Yes (Death)
  Sender: FDA-Public Use
  Company Number: PHHY2012MX045647

PATIENT
  Sex: Male

DRUGS (5)
  1. ZYLOPRIM [Concomitant]
     Dosage: UNK UKN, UNK
  2. JANUMET [Concomitant]
     Dosage: UNK UKN, UNK
  3. EXELON [Suspect]
     Indication: DEMENTIA ALZHEIMER'S TYPE
     Dosage: 1 PATCH (4.6 MG) PER DAY
     Route: 062
     Dates: start: 20110614
  4. TRILEPTAL [Suspect]
     Dosage: UNK UKN, UNK
  5. GLYBURIDE [Concomitant]
     Dosage: UNK UKN, UNK

REACTIONS (1)
  - RESPIRATORY ARREST [None]
